FAERS Safety Report 5046905-2 (Version None)
Quarter: 2006Q3

REPORT INFORMATION
  Report Type: 
  Country: None (occurrence: None)
  Receive Date: 20060710
  Receipt Date: 20060616
  Transmission Date: 20061208
  Serious: Yes (Other)
  Sender: FDA-Public Use
  Company Number: JP-MERCK-0606USA05679

PATIENT
  Age: 62 Year
  Sex: Male

DRUGS (4)
  1. COZAAR [Suspect]
     Indication: HYPERTENSION
     Route: 048
     Dates: start: 20040605, end: 20060621
  2. COZAAR [Suspect]
     Route: 048
     Dates: start: 20030227, end: 20030426
  3. COZAAR [Suspect]
     Route: 048
     Dates: start: 20030427, end: 20040604
  4. AMLODIN [Suspect]
     Indication: HYPERTENSION
     Route: 048
     Dates: start: 20030227, end: 20060621

REACTIONS (1)
  - GYNAECOMASTIA [None]
